FAERS Safety Report 6479749-5 (Version None)
Quarter: 2009Q4

REPORT INFORMATION
  Report Type: 
  Country: None (occurrence: None)
  Receive Date: 20091208
  Receipt Date: 20091125
  Transmission Date: 20100525
  Serious: Yes (Hospitalization, Other)
  Sender: FDA-Public Use
  Company Number: PHHY2009FR52169

PATIENT
  Sex: Male

DRUGS (3)
  1. VALSARTAN AND HYDROCHLOROTHIAZIDE [Suspect]
     Indication: HYPERTENSION
     Dosage: 1 DF DAILY
     Dates: end: 20090921
  2. BISOPROLOL FUMARATE [Concomitant]
     Indication: TACHYCARDIA
     Dosage: 0.5 DF DAILY
  3. SERESTA [Concomitant]
     Indication: ALCOHOL WITHDRAWAL SYNDROME
     Dosage: 1 DF DAILY

REACTIONS (20)
  - ABDOMINAL PAIN UPPER [None]
  - BLOOD CREATININE INCREASED [None]
  - BLOOD PRESSURE DECREASED [None]
  - BLOOD UREA INCREASED [None]
  - CEREBRAL ATROPHY [None]
  - CHEST PAIN [None]
  - FALL [None]
  - GAIT DISTURBANCE [None]
  - HAEMATOMA [None]
  - HEAD INJURY [None]
  - HEPATIC STEATOSIS [None]
  - HEPATOMEGALY [None]
  - HYPOKALAEMIA [None]
  - HYPONATRAEMIA [None]
  - JAUNDICE [None]
  - LOSS OF CONSCIOUSNESS [None]
  - PALLOR [None]
  - RENAL FAILURE ACUTE [None]
  - RIB FRACTURE [None]
  - TACHYCARDIA [None]
